FAERS Safety Report 7516776-0 (Version None)
Quarter: 2011Q2

REPORT INFORMATION
  Report Type: 
  Country: None (occurrence: None)
  Receive Date: 20110601
  Receipt Date: 20110530
  Transmission Date: 20111010
  Serious: Yes (Death, Hospitalization)
  Sender: FDA-Public Use
  Company Number: PHHY2011IN46247

PATIENT
  Age: 56 Year
  Sex: Male

DRUGS (3)
  1. ALLOPURINOL [Suspect]
     Indication: ARTHRITIS
     Dosage: 100 MG, QD
  2. DICLOFENAC SODIUM [Concomitant]
     Dosage: UNK
  3. BEVACIZUMAB [Suspect]
     Indication: AGE-RELATED MACULAR DEGENERATION

REACTIONS (13)
  - BLISTER [None]
  - DEATH [None]
  - TOXIC EPIDERMAL NECROLYSIS [None]
  - OLIGURIA [None]
  - PAIN [None]
  - VISUAL ACUITY REDUCED [None]
  - RENAL IMPAIRMENT [None]
  - MOUTH ULCERATION [None]
  - CONJUNCTIVITIS [None]
  - AGE-RELATED MACULAR DEGENERATION [None]
  - DRUG HYPERSENSITIVITY [None]
  - RASH MACULO-PAPULAR [None]
  - SKIN DISORDER [None]
